FAERS Safety Report 4365969-2 (Version None)
Quarter: 2004Q2

REPORT INFORMATION
  Report Type: 
  Country: None (occurrence: None)
  Receive Date: 20040524
  Receipt Date: 20040218
  Transmission Date: 20050107
  Serious: No
  Sender: FDA-Public Use
  Company Number: SU-2004-002148

PATIENT
  Age: 35 Year
  Sex: Female
  Weight: 86.1834 kg

DRUGS (1)
  1. BENICAR [Suspect]
     Indication: HYPERTENSION
     Dosage: PO
     Route: 048
     Dates: start: 20040211

REACTIONS (2)
  - ABDOMINAL PAIN [None]
  - GASTRITIS [None]
